FAERS Safety Report 11068047 (Version 1)
Quarter: 2015Q2

REPORT INFORMATION
  Report Type: Spontaneous
  Country: FR (occurrence: FR)
  Receive Date: 20150427
  Receipt Date: 20150427
  Transmission Date: 20150821
  Serious: Yes (Hospitalization)
  Sender: FDA-Public Use
  Company Number: FR-ROCHE-1567352

PATIENT
  Age: 68 Year
  Sex: Male

DRUGS (16)
  1. AMOXICILLIN. [Suspect]
     Active Substance: AMOXICILLIN
     Indication: PNEUMONIA
     Route: 065
  2. AZILECT [Concomitant]
     Active Substance: RASAGILINE MESYLATE
  3. MODOPAR [Concomitant]
     Active Substance: BENSERAZIDE HYDROCHLORIDE\LEVODOPA
  4. LOVENOX [Suspect]
     Active Substance: ENOXAPARIN SODIUM
     Indication: PRODUCT USED FOR UNKNOWN INDICATION
     Route: 065
     Dates: start: 20150318, end: 20150327
  5. OLMETEC [Concomitant]
     Active Substance: OLMESARTAN MEDOXOMIL
     Route: 065
  6. NOVOMIX [Concomitant]
     Active Substance: INSULIN ASPART
     Route: 065
     Dates: start: 1999
  7. KARDEGIC [Concomitant]
     Active Substance: ASPIRIN LYSINE
  8. BROMAZEPAM [Concomitant]
     Active Substance: BROMAZEPAM
     Route: 065
     Dates: end: 20150322
  9. IMOVANE [Concomitant]
     Active Substance: ZOPICLONE
     Route: 065
     Dates: end: 20150322
  10. SILODYX [Suspect]
     Active Substance: SILODOSIN
     Indication: PRODUCT USED FOR UNKNOWN INDICATION
     Route: 065
     Dates: start: 201502, end: 20150322
  11. CYMBALTA [Concomitant]
     Active Substance: DULOXETINE HYDROCHLORIDE
     Route: 065
     Dates: end: 20150322
  12. HUMIRA [Suspect]
     Active Substance: ADALIMUMAB
     Indication: RHEUMATOID ARTHRITIS
     Route: 065
     Dates: start: 20150226
  13. CONTRAMAL [Suspect]
     Active Substance: TRAMADOL HYDROCHLORIDE
     Indication: PRODUCT USED FOR UNKNOWN INDICATION
     Route: 065
     Dates: start: 20150318, end: 20150322
  14. ROCEPHINE [Suspect]
     Active Substance: CEFTRIAXONE SODIUM
     Indication: PNEUMONIA
     Route: 042
     Dates: start: 20150307, end: 20150311
  15. METOJECT [Suspect]
     Active Substance: METHOTREXATE SODIUM
     Indication: RHEUMATOID ARTHRITIS
     Route: 065
     Dates: start: 20150305
  16. NOVORAPID [Concomitant]
     Active Substance: INSULIN ASPART
     Route: 065
     Dates: start: 1999

REACTIONS (2)
  - Pneumonia [Recovered/Resolved]
  - Agranulocytosis [Recovering/Resolving]

NARRATIVE: CASE EVENT DATE: 20150307
